FAERS Safety Report 12881395 (Version 3)
Quarter: 2019Q3

REPORT INFORMATION
  Report Type: Spontaneous
  Country: US (occurrence: US)
  Receive Date: 20161025
  Receipt Date: 20190909
  Transmission Date: 20191004
  Serious: Yes (Other)
  Sender: FDA-Public Use
  Company Number: US-JNJFOC-20161009663

PATIENT
  Sex: Male

DRUGS (11)
  1. RISPERDAL [Suspect]
     Active Substance: RISPERIDONE
     Indication: AUTISM SPECTRUM DISORDER
     Route: 065
     Dates: end: 201001
  2. RISPERDAL [Suspect]
     Active Substance: RISPERIDONE
     Indication: PSYCHOTIC DISORDER
     Route: 048
     Dates: start: 20080224, end: 20081209
  3. SEROQUEL [Suspect]
     Active Substance: QUETIAPINE FUMARATE
     Indication: ANXIETY
  4. RISPERDAL [Suspect]
     Active Substance: RISPERIDONE
     Indication: DEPRESSION
     Route: 065
     Dates: start: 20080220, end: 20081209
  5. RISPERDAL [Suspect]
     Active Substance: RISPERIDONE
     Indication: ANXIETY
  6. RISPERDAL [Suspect]
     Active Substance: RISPERIDONE
     Indication: DEPRESSION
  7. SEROQUEL [Suspect]
     Active Substance: QUETIAPINE FUMARATE
     Indication: DEPRESSION
  8. RISPERDAL [Suspect]
     Active Substance: RISPERIDONE
     Indication: ANXIETY
  9. RISPERDAL [Suspect]
     Active Substance: RISPERIDONE
     Indication: PSYCHOTIC DISORDER
  10. RISPERDAL [Suspect]
     Active Substance: RISPERIDONE
     Indication: AUTISM SPECTRUM DISORDER
  11. SEROQUEL [Suspect]
     Active Substance: QUETIAPINE FUMARATE
     Indication: AUTISM SPECTRUM DISORDER
     Route: 065

REACTIONS (2)
  - Gynaecomastia [Recovered/Resolved]
  - Emotional distress [Unknown]

NARRATIVE: CASE EVENT DATE: 2009
